FAERS Safety Report 4620707-0 (Version None)
Quarter: 2005Q1

REPORT INFORMATION
  Report Type: 
  Country: None (occurrence: None)
  Receive Date: 20050325
  Receipt Date: 20050309
  Transmission Date: 20050727
  Serious: Yes (Death)
  Sender: FDA-Public Use
  Company Number: 2005S1001115

PATIENT
  Age: 64 Year
  Sex: Female

DRUGS (2)
  1. ALLOPURINOL [Suspect]
     Indication: GOUT
     Dosage: 300 MG; QD; PO
     Route: 048
     Dates: start: 20051122, end: 20041201
  2. LEVOTHYROXINE SODIUM [Concomitant]

REACTIONS (8)
  - ASTHENIA [None]
  - BLISTER [None]
  - BONE PAIN [None]
  - CONVULSION [None]
  - LIVER FUNCTION TEST ABNORMAL [None]
  - OEDEMA [None]
  - RASH [None]
  - RENAL DISORDER [None]
